FAERS Safety Report 16738918 (Version 1)
Quarter: 2019Q3

REPORT INFORMATION
  Report Type: Spontaneous
  Country: US (occurrence: US)
  Receive Date: 20190826
  Receipt Date: 20190826
  Transmission Date: 20191005
  Serious: Yes (Hospitalization)
  Sender: FDA-Public Use
  Company Number: US-SCIEGEN PHARMACEUTICALS INC-2019SCILIT00244

PATIENT

DRUGS (10)
  1. ALL-TRANS RETINOIC ACID (ATRA) [Suspect]
     Active Substance: TRETINOIN
  2. OMEPRAZOLE. [Concomitant]
     Active Substance: OMEPRAZOLE
  3. LEVETIRACETAM. [Interacting]
     Active Substance: LEVETIRACETAM
  4. AMITRIPTYLINE [Interacting]
     Active Substance: AMITRIPTYLINE
  5. PREGABALIN CAPSULES [Suspect]
     Active Substance: PREGABALIN
  6. ARSENIC TRIOXIDE (ATO) [Interacting]
     Active Substance: ARSENIC TRIOXIDE
  7. LOSARTAN. [Concomitant]
     Active Substance: LOSARTAN
  8. DULOXETINE. [Interacting]
     Active Substance: DULOXETINE
  9. LEVOTHYROXINE. [Concomitant]
     Active Substance: LEVOTHYROXINE
  10. STEROIDS [Interacting]
     Active Substance: UNSPECIFIED INGREDIENT

REACTIONS (4)
  - Disturbance in attention [Recovered/Resolved]
  - Myoclonus [Recovered/Resolved]
  - Drug interaction [Unknown]
  - Neurotoxicity [Unknown]
